FAERS Safety Report 6137429-X (Version None)
Quarter: 2009Q1

REPORT INFORMATION
  Report Type: 
  Country: None (occurrence: None)
  Receive Date: 20090326
  Receipt Date: 20090316
  Transmission Date: 20090719
  Serious: Yes (Other)
  Sender: FDA-Public Use
  Company Number: THYR-1000121

PATIENT
  Age: 41 Year
  Sex: Female
  Weight: 114.9 kg

DRUGS (5)
  1. THYROGEN [Suspect]
     Indication: DIAGNOSTIC PROCEDURE
     Dosage: 0.9 MG, ONCE, INTRAMUSCULAR
     Route: 030
     Dates: start: 20090126, end: 20090126
  2. THYROGEN [Suspect]
     Indication: DIAGNOSTIC PROCEDURE
     Dosage: 0.9 MG, ONCE, INTRAMUSCULAR
     Route: 030
     Dates: start: 19970101
  3. LEVOTHYROXINE SODIUM [Concomitant]
  4. DIOVAN HCT [Concomitant]
  5. PRILOSEC [Concomitant]

REACTIONS (5)
  - ABDOMINAL PAIN [None]
  - DIZZINESS [None]
  - HOT FLUSH [None]
  - NAUSEA [None]
  - VOMITING [None]
